FAERS Safety Report 23035039 (Version 3)
Quarter: 2024Q1

REPORT INFORMATION
  Report Type: Spontaneous
  Country: JP (occurrence: JP)
  Receive Date: 20231005
  Receipt Date: 20240227
  Transmission Date: 20240410
  Serious: Yes (Death, Hospitalization)
  Sender: FDA-Public Use
  Company Number: 202300355

PATIENT
  Age: 78 Year
  Sex: Male

DRUGS (17)
  1. BENDAMUSTINE HYDROCHLORIDE [Suspect]
     Active Substance: BENDAMUSTINE HYDROCHLORIDE
     Indication: Follicular lymphoma
     Dosage: 90 MG/M2, CYCLE 1 GB THERAPY
     Route: 042
     Dates: start: 20210910
  2. BENDAMUSTINE HYDROCHLORIDE [Suspect]
     Active Substance: BENDAMUSTINE HYDROCHLORIDE
     Dosage: 90 MG/M2, CYCLE 2 GB  THERAPY
     Route: 042
     Dates: start: 20211021
  3. BENDAMUSTINE HYDROCHLORIDE [Suspect]
     Active Substance: BENDAMUSTINE HYDROCHLORIDE
     Dosage: 90 MG/M2, CYCLE 3 GB  THERAPY
     Route: 042
     Dates: start: 20211118
  4. BENDAMUSTINE HYDROCHLORIDE [Suspect]
     Active Substance: BENDAMUSTINE HYDROCHLORIDE
     Dosage: 90 MG/M2, CYCLE 4 GB  THERAPY
     Route: 042
     Dates: start: 20220106
  5. BENDAMUSTINE HYDROCHLORIDE [Suspect]
     Active Substance: BENDAMUSTINE HYDROCHLORIDE
     Dosage: 90 MG/M2, CYCLE 5 GB  THERAPY
     Route: 042
     Dates: start: 20220203
  6. BENDAMUSTINE HYDROCHLORIDE [Suspect]
     Active Substance: BENDAMUSTINE HYDROCHLORIDE
     Dosage: 90 MG/M2, CYCLE 6 GB  THERAPY
     Route: 042
     Dates: start: 20220331
  7. GAZYVA [Suspect]
     Active Substance: OBINUTUZUMAB
     Indication: Follicular lymphoma
     Dosage: 1000 MG/M2, CYCLE 1 GB THERAPY
     Route: 042
     Dates: start: 20210910
  8. GAZYVA [Suspect]
     Active Substance: OBINUTUZUMAB
     Dosage: 1000 MG/M2, CYCLE 2 GB THERAPY
     Route: 042
     Dates: start: 20211021
  9. GAZYVA [Suspect]
     Active Substance: OBINUTUZUMAB
     Dosage: 1000 MG/M2, CYCLE 3 GB THERAPY
     Route: 042
     Dates: start: 20211118
  10. GAZYVA [Suspect]
     Active Substance: OBINUTUZUMAB
     Dosage: 1000 MG/M2, CYCLE 4 GB THERAPY
     Route: 042
     Dates: start: 20220106
  11. GAZYVA [Suspect]
     Active Substance: OBINUTUZUMAB
     Dosage: 1000 MG/M2, CYCLE 5 GB THERAPY
     Route: 042
     Dates: start: 20220203
  12. GAZYVA [Suspect]
     Active Substance: OBINUTUZUMAB
     Dosage: 1000 MG/M2, CYCLE 6 GB THERAPY
     Route: 042
     Dates: start: 20220331
  13. GAZYVA [Suspect]
     Active Substance: OBINUTUZUMAB
     Dosage: 1000 MG/M2, OBINUTUZUMAB MAINTENANCE THERAPY
     Route: 042
     Dates: start: 20220512
  14. GAZYVA [Suspect]
     Active Substance: OBINUTUZUMAB
     Dosage: 1000 MG/M2, OBINUTUZUMAB MAINTENANCE THERAPY
     Route: 042
     Dates: start: 20220714
  15. GAZYVA [Suspect]
     Active Substance: OBINUTUZUMAB
     Dosage: 1000 MG/M2, OBINUTUZUMAB MAINTENANCE THERAPY
     Route: 042
     Dates: start: 20220929
  16. GAZYVA [Suspect]
     Active Substance: OBINUTUZUMAB
     Dosage: 1000 MG/M2, OBINUTUZUMAB MAINTENANCE THERAPY
     Route: 042
     Dates: start: 20221208
  17. GAZYVA [Suspect]
     Active Substance: OBINUTUZUMAB
     Dosage: 1000 MG/M2, OBINUTUZUMAB MAINTENANCE THERAPY
     Route: 042
     Dates: start: 20230202

REACTIONS (3)
  - COVID-19 [Fatal]
  - Bacterial sepsis [Fatal]
  - Lymphocyte count decreased [Unknown]

NARRATIVE: CASE EVENT DATE: 20220105
